FAERS Safety Report 4313918-5 (Version None)
Quarter: 2004Q1

REPORT INFORMATION
  Report Type: 
  Country: None (occurrence: None)
  Receive Date: 20040305
  Receipt Date: 20011210
  Transmission Date: 20041129
  Serious: No
  Sender: FDA-Public Use
  Company Number: 3163

PATIENT
  Age: 56 Year
  Sex: Female

DRUGS (6)
  1. METHOTREXATE [Suspect]
     Indication: BREAST CANCER
     Dates: end: 20001201
  2. CYCLOPHOSPHAMIDE [Suspect]
     Indication: BREAST CANCER
     Dates: end: 20001201
  3. FLUCYTOSINE [Concomitant]
  4. LISINOPRIL [Concomitant]
  5. TAMOXIFEN [Concomitant]
  6. FLUOROURACIL [Concomitant]

REACTIONS (1)
  - SKIN HYPERPIGMENTATION [None]
